FAERS Safety Report 8518139 (Version 3)
Quarter: 2012Q4

REPORT INFORMATION
  Report Type: 
  Country: US (occurrence: US)
  Receive Date: 20120417
  Receipt Date: 20120911
  Transmission Date: 20130627
  Serious: No
  Sender: FDA-Public Use
  Company Number: US-ASTRAZENECA-2012SE01555

PATIENT
  Age: 84 Year
  Sex: Female

DRUGS (3)
  1. NEXIUM [Suspect]
     Route: 048
  2. PREVACID [Concomitant]
  3. ACIPHEX [Concomitant]

REACTIONS (7)
  - Cystitis [Unknown]
  - Kidney infection [Unknown]
  - Hernia [Unknown]
  - Gastric disorder [Unknown]
  - Visual impairment [Unknown]
  - Hypokinesia [Unknown]
  - Malaise [Unknown]
